FAERS Safety Report 4775332-8 (Version None)
Quarter: 2005Q3

REPORT INFORMATION
  Report Type: 
  Country: None (occurrence: None)
  Receive Date: 20050922
  Receipt Date: 20050914
  Transmission Date: 20060218
  Serious: Yes (Hospitalization)
  Sender: FDA-Public Use
  Company Number: US-BOEHRINGER INGELHEIM PHARMACEUTICALS, INC.-2005-BP-16228BP

PATIENT

DRUGS (2)
  1. CATAPRES [Suspect]
     Indication: HYPERTENSION
     Route: 048
     Dates: end: 20050914
  2. TOPROL-XL [Concomitant]

REACTIONS (1)
  - INFECTED SKIN ULCER [None]
